FAERS Safety Report 6472918-X (Version None)
Quarter: 2009Q4

REPORT INFORMATION
  Report Type: 
  Country: None (occurrence: None)
  Receive Date: 20091203
  Receipt Date: 20081219
  Transmission Date: 20100525
  Serious: No
  Sender: FDA-Public Use
  Company Number: US-AMGEN-KDL324834

PATIENT
  Sex: Female

DRUGS (1)
  1. ENBREL [Suspect]
     Indication: ANKYLOSING SPONDYLITIS
     Route: 058
     Dates: start: 20080912

REACTIONS (5)
  - ANKYLOSING SPONDYLITIS [None]
  - MALAISE [None]
  - NASOPHARYNGITIS [None]
  - PRODUCTIVE COUGH [None]
  - SOMNOLENCE [None]
